FAERS Safety Report 22641623 (Version 2)
Quarter: 2023Q2

REPORT INFORMATION
  Report Type: Spontaneous
  Country: SA (occurrence: SA)
  Receive Date: 20230626
  Receipt Date: 20230628
  Transmission Date: 20230722
  Serious: Yes (Hospitalization, Other)
  Sender: FDA-Public Use
  Company Number: SA-MLMSERVICE-20230613-4337723-1

PATIENT
  Age: 45 Year
  Sex: Male

DRUGS (7)
  1. METHYLPREDNISOLONE SODIUM SUCCINATE [Suspect]
     Active Substance: METHYLPREDNISOLONE SODIUM SUCCINATE
     Indication: Immunosuppressant drug therapy
     Dosage: ON DAYS 2 AND 3
     Dates: start: 20220322, end: 20220323
  2. BELATACEPT [Suspect]
     Active Substance: BELATACEPT
     Indication: Immunosuppressant drug therapy
     Dosage: ON DAY 9 RECEIVED THE FIRST DOSE OF BELATACEPT FOLLOWED BY A SECOND DOSE 5 DAYS LATER
     Dates: start: 20220329, end: 20220329
  3. BELATACEPT [Suspect]
     Active Substance: BELATACEPT
     Dosage: ON DAY 9 RECEIVED THE FIRST DOSE OF BELATACEPT FOLLOWED BY A SECOND DOSE 5 DAYS LATER
     Dates: start: 20220403, end: 20220403
  4. CYCLOSPORINE [Suspect]
     Active Substance: CYCLOSPORINE
     Indication: Immunosuppressant drug therapy
     Dosage: UNK
     Route: 048
     Dates: start: 202203, end: 202203
  5. THYMOCYTE IMMUNE GLOBULIN NOS [Suspect]
     Active Substance: THYMOCYTE IMMUNE GLOBULIN NOS
     Indication: Immunosuppressant drug therapy
     Dosage: DAYS 2-4
     Dates: start: 20220322, end: 20220324
  6. MYCOPHENOLATE MOFETIL [Suspect]
     Active Substance: MYCOPHENOLATE MOFETIL
     Indication: Immunosuppressant drug therapy
     Dosage: UNK
     Dates: start: 202203
  7. PREDNISONE [Suspect]
     Active Substance: PREDNISONE
     Indication: Immunosuppressant drug therapy
     Dosage: UNK
     Route: 048
     Dates: start: 202203, end: 20220324

REACTIONS (5)
  - Thrombotic microangiopathy [Recovered/Resolved]
  - Plasmodium falciparum infection [Recovered/Resolved]
  - Renal ischaemia [Recovered/Resolved]
  - Acute kidney injury [Recovered/Resolved]
  - Enterococcal infection [Unknown]

NARRATIVE: CASE EVENT DATE: 20220326
